FAERS Safety Report 19939677 (Version 3)
Quarter: 2023Q4

REPORT INFORMATION
  Report Type: Spontaneous
  Country: US (occurrence: US)
  Receive Date: 20211012
  Receipt Date: 20231005
  Transmission Date: 20240109
  Serious: No
  Sender: FDA-Public Use
  Company Number: US-GILEAD-2021-0551945

PATIENT
  Age: 56 Year
  Sex: Male
  Weight: 97.506 kg

DRUGS (17)
  1. TRUVADA [Suspect]
     Active Substance: EMTRICITABINE\TENOFOVIR DISOPROXIL FUMARATE
     Indication: Prophylaxis against HIV infection
     Dosage: UNK
     Route: 048
     Dates: start: 2016
  2. TRUVADA [Suspect]
     Active Substance: EMTRICITABINE\TENOFOVIR DISOPROXIL FUMARATE
     Dosage: UNK
     Route: 048
     Dates: start: 201707, end: 202001
  3. DESCOVY [Concomitant]
     Active Substance: EMTRICITABINE\TENOFOVIR ALAFENAMIDE FUMARATE
  4. SUMATRIPTAN [Concomitant]
     Active Substance: SUMATRIPTAN
  5. AZITHROMYCIN [Concomitant]
     Active Substance: AZITHROMYCIN
  6. VALACYCLOVIR HYDROCHLORIDE [Concomitant]
     Active Substance: VALACYCLOVIR HYDROCHLORIDE
  7. SULFAMETHOXAZOLE [Concomitant]
     Active Substance: SULFAMETHOXAZOLE
  8. TAMSULOSIN [Concomitant]
     Active Substance: TAMSULOSIN
  9. ONDANSETRON [Concomitant]
     Active Substance: ONDANSETRON
  10. URIBEL [Concomitant]
     Active Substance: HYOSCYAMINE SULFATE\METHENAMINE\METHYLENE BLUE\PHENYL SALICYLATE\SODIUM PHOSPHATE, MONOBASIC, MONOHY
  11. CEFADROXIL [Concomitant]
     Active Substance: CEFADROXIL
  12. HYDROCODONE [Concomitant]
     Active Substance: HYDROCODONE
  13. ETODOLAC [Concomitant]
     Active Substance: ETODOLAC
  14. OXYBUTYNIN [Concomitant]
     Active Substance: OXYBUTYNIN
  15. CEFUROXIME [Concomitant]
     Active Substance: CEFUROXIME
  16. IVERMECTIN [Concomitant]
     Active Substance: IVERMECTIN
  17. DOXYCYCLINE [Concomitant]
     Active Substance: DOXYCYCLINE

REACTIONS (6)
  - Bone density decreased [Not Recovered/Not Resolved]
  - Pain [Not Recovered/Not Resolved]
  - Emotional distress [Not Recovered/Not Resolved]
  - Anxiety [Not Recovered/Not Resolved]
  - Anhedonia [Not Recovered/Not Resolved]
  - Osteopenia [Not Recovered/Not Resolved]

NARRATIVE: CASE EVENT DATE: 20191101
